FAERS Safety Report 7361391-5 (Version None)
Quarter: 2011Q1

REPORT INFORMATION
  Report Type: 
  Country: None (occurrence: None)
  Receive Date: 20110318
  Receipt Date: 20110311
  Transmission Date: 20110831
  Serious: Yes (Hospitalization)
  Sender: FDA-Public Use
  Company Number: IE-ELI_LILLY_AND_COMPANY-IE201103004317

PATIENT
  Sex: Male

DRUGS (16)
  1. CLEXANE [Concomitant]
  2. SALBUTAMOL [Concomitant]
  3. MEROPENEM [Concomitant]
  4. QUININE [Concomitant]
  5. ROSUVASTATIN [Concomitant]
  6. FUROSEMIDE [Concomitant]
  7. ESOMEPRAZOL                        /01479301/ [Concomitant]
  8. DICLOFENAC [Concomitant]
  9. OXYNORM [Concomitant]
  10. OXYCONTIN [Concomitant]
  11. ZOLPIDEM [Concomitant]
  12. VANCOMYCIN HCL [Concomitant]
     Route: 042
  13. CO-DIOVAN [Concomitant]
  14. TIOTROPIUM [Concomitant]
  15. ACETAMINOPHEN [Concomitant]
  16. FORTEO [Suspect]
     Indication: OSTEOPOROSIS
     Dosage: 20 UG, UNK
     Route: 065
     Dates: start: 20110309

REACTIONS (3)
  - INFECTION [None]
  - INJECTION SITE ERYTHEMA [None]
  - INJECTION SITE JOINT WARMTH [None]
